FAERS Safety Report 22228125 (Version 1)
Quarter: 2023Q2

REPORT INFORMATION
  Report Type: Spontaneous
  Country: US (occurrence: US)
  Receive Date: 20230419
  Receipt Date: 20230419
  Transmission Date: 20230722
  Serious: No
  Sender: FDA-Public Use
  Company Number: US-JNJFOC-20191005555

PATIENT
  Age: 54 Year
  Sex: Female
  Weight: 81.720 kg

DRUGS (1)
  1. IMODIUM MULTI-SYMPTOM RELIEF [Suspect]
     Active Substance: DIMETHICONE\LOPERAMIDE HYDROCHLORIDE
     Indication: Product used for unknown indication
     Dosage: 1 TABLET ONCE
     Route: 048
     Dates: start: 20190918, end: 20190918

REACTIONS (4)
  - Product quality issue [Unknown]
  - Product use complaint [Unknown]
  - Dyspnoea [Recovered/Resolved]
  - Product coating issue [Unknown]

NARRATIVE: CASE EVENT DATE: 20190918
